FAERS Safety Report 25647167 (Version 1)
Quarter: 2025Q3

REPORT INFORMATION
  Report Type: 
  Country: CN (occurrence: CN)
  Receive Date: 20250806
  Receipt Date: 20250806
  Transmission Date: 20251020
  Serious: Yes (Life-Threatening, Hospitalization, Other)
  Sender: JIANGSU HANSOH PHARMACEUTICAL GROUP CO., LTD.
  Company Number: CN-Hansoh-20252190013603

PATIENT
  Age: 48 Year
  Sex: Female

DRUGS (2)
  1. AZACITIDINE [Suspect]
     Active Substance: AZACITIDINE
     Indication: Acute myeloid leukaemia recurrent
     Dosage: 125MG,QD
     Route: 058
     Dates: start: 20250625, end: 20250629
  2. VENETOCLAX [Suspect]
     Active Substance: VENETOCLAX
     Indication: Acute myeloid leukaemia recurrent
     Dosage: 100 G, QD
     Route: 048
     Dates: start: 20250623, end: 20250704

REACTIONS (4)
  - Myelosuppression [Recovering/Resolving]
  - Mouth ulceration [Recovering/Resolving]
  - Dysphonia [Recovering/Resolving]
  - Pyrexia [Unknown]

NARRATIVE: CASE EVENT DATE: 20250703
